FAERS Safety Report 17109323 (Version 1)
Quarter: 2019Q4

REPORT INFORMATION
  Report Type: Spontaneous
  Country: CN (occurrence: CN)
  Receive Date: 20191204
  Receipt Date: 20191204
  Transmission Date: 20200122
  Serious: Yes (Hospitalization, Other)
  Sender: FDA-Public Use
  Company Number: CN-BRISTOL-MYERS SQUIBB COMPANY-BMS-2019-113868

PATIENT
  Age: 72 Year
  Sex: Male
  Weight: 70 kg

DRUGS (2)
  1. SODIUM CHLORIDE. [Concomitant]
     Active Substance: SODIUM CHLORIDE
     Indication: PRODUCT USED FOR UNKNOWN INDICATION
     Dosage: 100 MILLILITER
     Route: 041
     Dates: start: 20190704, end: 20190704
  2. OPDIVO [Suspect]
     Active Substance: NIVOLUMAB
     Indication: OESOPHAGEAL CARCINOMA
     Dosage: 200 MILLIGRAM
     Route: 041
     Dates: start: 20190704

REACTIONS (7)
  - Fatigue [Recovering/Resolving]
  - Anaphylactoid reaction [Recovering/Resolving]
  - Loss of consciousness [Recovered/Resolved]
  - Apathy [Recovering/Resolving]
  - Orthostatic hypotension [Recovering/Resolving]
  - Decreased appetite [Recovering/Resolving]
  - Endocrine toxicity [Recovering/Resolving]

NARRATIVE: CASE EVENT DATE: 20190805
